FAERS Safety Report 6181849-4 (Version None)
Quarter: 2009Q2

REPORT INFORMATION
  Report Type: 
  Country: None (occurrence: None)
  Receive Date: 20090506
  Receipt Date: 20090424
  Transmission Date: 20091009
  Serious: Yes (Hospitalization)
  Sender: FDA-Public Use
  Company Number: GB-ELI_LILLY_AND_COMPANY-GB200903007607

PATIENT
  Sex: Male

DRUGS (7)
  1. CYMBALTA [Suspect]
     Indication: DEPRESSION
     Dosage: 60 MG, UNKNOWN
     Route: 048
  2. GALANTAMINE [Concomitant]
     Dosage: 16 MG, UNKNOWN
     Route: 048
  3. SIMVASTATIN [Concomitant]
     Dosage: 20 MG, UNKNOWN
     Route: 048
  4. LOPERAMIDE HCL [Concomitant]
     Dosage: 2 MG, UNKNOWN
     Route: 048
  5. DIAZEPAM [Concomitant]
     Dosage: 6 MG, UNKNOWN
     Route: 048
  6. ASPIRIN [Concomitant]
     Dosage: 75 MG, UNKNOWN
     Route: 048
  7. OMEPRAZOLE [Concomitant]
     Dosage: 20 MG, UNKNOWN
     Route: 048

REACTIONS (2)
  - DYSPHAGIA [None]
  - HOSPITALISATION [None]
